FAERS Safety Report 20737888 (Version 4)
Quarter: 2022Q2

REPORT INFORMATION
  Report Type: Spontaneous
  Country: PL (occurrence: PL)
  Receive Date: 20220422
  Receipt Date: 20220523
  Transmission Date: 20220721
  Serious: Yes (Other)
  Sender: FDA-Public Use
  Company Number: PL-BEH-2022144298

PATIENT
  Age: 29 Year
  Sex: Female
  Weight: 78 kg

DRUGS (17)
  1. RHOPHYLAC [Suspect]
     Active Substance: HUMAN RHO(D) IMMUNE GLOBULIN
     Dosage: UNK
     Route: 030
     Dates: start: 20211207
  2. RHOPHYLAC [Suspect]
     Active Substance: HUMAN RHO(D) IMMUNE GLOBULIN
     Dosage: UNK
     Route: 030
     Dates: start: 20211207
  3. RHOPHYLAC [Suspect]
     Active Substance: HUMAN RHO(D) IMMUNE GLOBULIN
     Dosage: UNK
     Route: 030
     Dates: start: 2013
  4. RHOPHYLAC [Suspect]
     Active Substance: HUMAN RHO(D) IMMUNE GLOBULIN
     Dosage: UNK
     Route: 030
     Dates: start: 2013
  5. RHOPHYLAC [Suspect]
     Active Substance: HUMAN RHO(D) IMMUNE GLOBULIN
     Dosage: UNK
     Route: 030
     Dates: start: 2019
  6. RHOPHYLAC [Suspect]
     Active Substance: HUMAN RHO(D) IMMUNE GLOBULIN
     Dosage: UNK
     Route: 030
     Dates: start: 2019
  7. RHOPHYLAC [Suspect]
     Active Substance: HUMAN RHO(D) IMMUNE GLOBULIN
     Dosage: UNK
     Route: 030
     Dates: start: 2020
  8. RHOPHYLAC [Suspect]
     Active Substance: HUMAN RHO(D) IMMUNE GLOBULIN
     Dosage: UNK
     Route: 030
     Dates: start: 2020
  9. RHOPHYLAC [Suspect]
     Active Substance: HUMAN RHO(D) IMMUNE GLOBULIN
     Dosage: UNK
     Route: 030
     Dates: start: 2021
  10. RHOPHYLAC [Suspect]
     Active Substance: HUMAN RHO(D) IMMUNE GLOBULIN
     Dosage: UNK
     Route: 030
     Dates: start: 2021
  11. RHOPHYLAC [Suspect]
     Active Substance: HUMAN RHO(D) IMMUNE GLOBULIN
     Dosage: UNK
     Route: 030
     Dates: start: 2022
  12. RHOPHYLAC [Suspect]
     Active Substance: HUMAN RHO(D) IMMUNE GLOBULIN
     Dosage: UNK
     Route: 030
     Dates: start: 2022
  13. METHYLDOPA [Concomitant]
     Active Substance: METHYLDOPA
     Dosage: UNK
     Route: 048
     Dates: start: 20210907, end: 20220302
  14. PROGESTERONE [Concomitant]
     Active Substance: PROGESTERONE
     Dosage: 100 MILLIGRAM, BID
     Route: 067
     Dates: start: 20210713, end: 20220208
  15. DUPHASTON [Concomitant]
     Active Substance: DYDROGESTERONE
     Dosage: 10 MILLIGRAM, BID
     Route: 048
     Dates: start: 20210713, end: 20220208
  16. ASMAG [Concomitant]
     Dosage: UNK, BID
     Route: 048
     Dates: start: 20210713, end: 20220208
  17. ACARD [Concomitant]
     Dosage: 75 MILLIGRAM, QD
     Route: 048
     Dates: start: 20210713, end: 20220129

REACTIONS (2)
  - Obstructed labour [Recovered/Resolved]
  - Maternal exposure during pregnancy [Recovered/Resolved]
